FAERS Safety Report 7619929-6 (Version None)
Quarter: 2011Q3

REPORT INFORMATION
  Report Type: 
  Country: None (occurrence: None)
  Receive Date: 20110719
  Receipt Date: 20110705
  Transmission Date: 20111222
  Serious: Yes (Other)
  Sender: FDA-Public Use
  Company Number: NL-SANOFI-AVENTIS-2011SA044353

PATIENT
  Age: 76 Year
  Sex: Male
  Weight: 99 kg

DRUGS (6)
  1. IRBESARTAN [Concomitant]
     Route: 065
  2. FUROSEMIDE [Concomitant]
     Route: 065
     Dates: end: 20110208
  3. METOPROLOL TARTRATE [Concomitant]
     Route: 065
  4. ACENOCOUMAROL [Concomitant]
     Route: 065
  5. DRONEDARONE HCL [Suspect]
     Indication: ATRIAL FIBRILLATION
     Route: 048
     Dates: start: 20101111, end: 20110314
  6. ROSUVASTATIN [Concomitant]
     Route: 065
     Dates: start: 20101009

REACTIONS (1)
  - CARDIAC FAILURE [None]
